FAERS Safety Report 22166866 (Version 1)
Quarter: 2023Q2

REPORT INFORMATION
  Report Type: Spontaneous
  Country: GR (occurrence: GR)
  Receive Date: 20230403
  Receipt Date: 20230403
  Transmission Date: 20230722
  Serious: Yes (Hospitalization, Other)
  Sender: FDA-Public Use
  Company Number: GR-PFIZER INC-202300137635

PATIENT
  Age: 14 Year
  Sex: Female

DRUGS (2)
  1. RAPAMUNE [Suspect]
     Active Substance: SIROLIMUS
     Dosage: UNK
  2. RAPAMUNE [Suspect]
     Active Substance: SIROLIMUS
     Dosage: 7 MG, 1X/DAY
     Dates: start: 202208

REACTIONS (4)
  - Pericardial effusion [Unknown]
  - Generalised oedema [Unknown]
  - Pleural effusion [Unknown]
  - Weight increased [Unknown]
